FAERS Safety Report 11225293 (Version 6)
Quarter: 2017Q2

REPORT INFORMATION
  Report Type: Spontaneous
  Country: CA (occurrence: CA)
  Receive Date: 20150629
  Receipt Date: 20170406
  Transmission Date: 20170829
  Serious: Yes (Life-Threatening, Hospitalization)
  Sender: FDA-Public Use
  Company Number: CA-ACTELION-A-NJ2015-119816

PATIENT
  Age: 65 Year
  Sex: Female
  Weight: 77.98 kg

DRUGS (23)
  1. VITAMIN B12 [Concomitant]
     Active Substance: CYANOCOBALAMIN
  2. TYLENOL WITH CODEINE [Concomitant]
     Active Substance: ACETAMINOPHEN\CODEINE PHOSPHATE
  3. WARFARIN [Concomitant]
     Active Substance: WARFARIN
  4. SYNTHROID [Concomitant]
     Active Substance: LEVOTHYROXINE SODIUM
  5. ALDACTONE [Concomitant]
     Active Substance: SPIRONOLACTONE
     Dosage: 75 MG, UNK
  6. NEXIUM [Concomitant]
     Active Substance: ESOMEPRAZOLE MAGNESIUM
  7. GLYBURIDE. [Concomitant]
     Active Substance: GLYBURIDE
  8. LASIX [Concomitant]
     Active Substance: FUROSEMIDE
     Dosage: 80 MG, UNK
  9. OXYGEN. [Concomitant]
     Active Substance: OXYGEN
     Dosage: 3 L, UNK
     Route: 045
  10. VITAMIN B COMPLEX [Concomitant]
     Active Substance: CYANOCOBALAMIN\DEXPANTHENOL\NIACINAMIDE\PYRIDOXINE HYDROCHLORIDE\RIBOFLAVIN 5^-PHOSPHATE SODIUM\THIAMINE HYDROCHLORIDE\VITAMIN B COMPLEX
  11. CARIPUL [Suspect]
     Active Substance: EPOPROSTENOL
     Dosage: 90000 NG, UNK
     Route: 042
  12. CODEINE CONTIN [Concomitant]
     Active Substance: CODEINE SULFATE
  13. NOVORAPID [Concomitant]
     Active Substance: INSULIN ASPART
  14. LANTUS [Concomitant]
     Active Substance: INSULIN GLARGINE
  15. FOLIC ACID. [Concomitant]
     Active Substance: FOLIC ACID
  16. IRON [Concomitant]
     Active Substance: IRON
  17. REVATIO [Suspect]
     Active Substance: SILDENAFIL CITRATE
     Indication: PULMONARY ARTERIAL HYPERTENSION
     Dosage: 20 MG, TID
     Route: 048
     Dates: start: 20091203
  18. ALDACTONE [Concomitant]
     Active Substance: SPIRONOLACTONE
     Dosage: 12.5 MG, UNK
  19. OPSUMIT [Suspect]
     Active Substance: MACITENTAN
     Indication: PULMONARY ARTERIAL HYPERTENSION
     Dosage: UNK
     Route: 048
  20. SLOW K [Concomitant]
     Active Substance: POTASSIUM CHLORIDE
  21. VENTOLIN [Concomitant]
     Active Substance: ALBUTEROL SULFATE
  22. CARIPUL [Suspect]
     Active Substance: EPOPROSTENOL
     Indication: PULMONARY ARTERIAL HYPERTENSION
     Dosage: 75000 MG/ML, CONT INFUS
     Route: 042
     Dates: start: 20140915
  23. CRESTOR [Concomitant]
     Active Substance: ROSUVASTATIN CALCIUM

REACTIONS (21)
  - Incorrect dose administered [Not Recovered/Not Resolved]
  - Pneumonia [Not Recovered/Not Resolved]
  - Body temperature increased [Not Recovered/Not Resolved]
  - Catheter site infection [Not Recovered/Not Resolved]
  - Abdominal discomfort [Not Recovered/Not Resolved]
  - Chest discomfort [Not Recovered/Not Resolved]
  - Impaired gastric emptying [Not Recovered/Not Resolved]
  - Device leakage [Not Recovered/Not Resolved]
  - Nausea [Not Recovered/Not Resolved]
  - Device breakage [Not Recovered/Not Resolved]
  - Chest injury [Unknown]
  - Malaise [Not Recovered/Not Resolved]
  - Haemoglobin decreased [Not Recovered/Not Resolved]
  - Contusion [Unknown]
  - Arthralgia [Unknown]
  - Device malfunction [Recovered/Resolved]
  - Dyspnoea [Not Recovered/Not Resolved]
  - Increased bronchial secretion [Not Recovered/Not Resolved]
  - Fall [Unknown]
  - Cough [Unknown]
  - Pallor [Recovered/Resolved]

NARRATIVE: CASE EVENT DATE: 20150613
